FAERS Safety Report 21873765 (Version 1)
Quarter: 2023Q1

REPORT INFORMATION
  Report Type: Report from Study
  Country: US (occurrence: US)
  Receive Date: 20230117
  Receipt Date: 20230117
  Transmission Date: 20230417
  Serious: No
  Sender: FDA-Public Use
  Company Number: US-ABBVIE-4273336

PATIENT
  Sex: Female

DRUGS (15)
  1. IMBRUVICA [Suspect]
     Active Substance: IBRUTINIB
     Indication: Chronic lymphocytic leukaemia
     Route: 048
     Dates: start: 202210
  2. Kenalog  40 MG [Concomitant]
     Indication: Product used for unknown indication
     Dosage: INJECTION SUSPENSION
  3. EXEMESTANE [Concomitant]
     Active Substance: EXEMESTANE
     Indication: Product used for unknown indication
  4. M2 Magnesium  100 MG [Concomitant]
     Indication: Product used for unknown indication
     Route: 048
  5. Losartan Potassium  100 [Concomitant]
     Indication: Product used for unknown indication
     Route: 048
  6. Metoprolol Tartrate  75 [Concomitant]
     Indication: Product used for unknown indication
     Route: 048
  7. VITAMIN B12 [Concomitant]
     Active Substance: CYANOCOBALAMIN
     Indication: Product used for unknown indication
  8. OMEPRAZOLE [Concomitant]
     Active Substance: OMEPRAZOLE
     Indication: Product used for unknown indication
     Dosage: DELAYED REL
     Route: 048
  9. PRAVASTATIN SODIUM [Concomitant]
     Active Substance: PRAVASTATIN SODIUM
     Indication: Product used for unknown indication
     Route: 048
  10. AMLODIPINE BESYLATE [Concomitant]
     Active Substance: AMLODIPINE BESYLATE
     Indication: Product used for unknown indication
     Route: 048
  11. methylPREDNISolone Ther [Concomitant]
     Indication: Product used for unknown indication
     Route: 048
  12. VITAMIN D3 [Concomitant]
     Active Substance: CHOLECALCIFEROL
     Indication: Product used for unknown indication
     Dosage: PRONUTRIENTS
     Route: 048
  13. Biotin 300 MCG [Concomitant]
     Indication: Product used for unknown indication
     Route: 048
  14. SM Zinc  50 MG [Concomitant]
     Indication: Product used for unknown indication
     Route: 048
  15. MYRBETRIQ [Concomitant]
     Active Substance: MIRABEGRON
     Indication: Product used for unknown indication
     Dosage: EXTENDED RELE
     Route: 048

REACTIONS (2)
  - Sinus disorder [Not Recovered/Not Resolved]
  - Middle ear effusion [Not Recovered/Not Resolved]
